FAERS Safety Report 23320515 (Version 1)
Quarter: 2023Q4

REPORT INFORMATION
  Report Type: Spontaneous
  Country: JP (occurrence: JP)
  Receive Date: 20231220
  Receipt Date: 20231220
  Transmission Date: 20240110
  Serious: Yes (Other)
  Sender: FDA-Public Use
  Company Number: JP-MYLANLABS-2023M1133011

PATIENT
  Age: 47 Year
  Sex: Female

DRUGS (18)
  1. LEVOFLOXACIN [Suspect]
     Active Substance: LEVOFLOXACIN
     Indication: Blepharokeratoconjunctivitis
     Route: 061
  2. LEVOFLOXACIN [Suspect]
     Active Substance: LEVOFLOXACIN
     Indication: Dermatitis contact
  3. CEFTRIAXONE [Suspect]
     Active Substance: CEFTRIAXONE\CEFTRIAXONE SODIUM
     Indication: Blepharokeratoconjunctivitis
     Route: 065
  4. CEFTRIAXONE [Suspect]
     Active Substance: CEFTRIAXONE\CEFTRIAXONE SODIUM
     Indication: Dermatitis contact
  5. SODIUM CHLORIDE [Suspect]
     Active Substance: SODIUM CHLORIDE
     Indication: Blepharokeratoconjunctivitis
     Dosage: TO WASH THE EYES
     Route: 061
  6. SODIUM CHLORIDE [Suspect]
     Active Substance: SODIUM CHLORIDE
     Indication: Dermatitis contact
  7. CEFMENOXIME [Suspect]
     Active Substance: CEFMENOXIME
     Indication: Blepharokeratoconjunctivitis
     Dosage: UNK
     Route: 061
  8. CEFMENOXIME [Suspect]
     Active Substance: CEFMENOXIME
     Indication: Dermatitis contact
     Dosage: UNK
     Route: 061
  9. OFLOXACIN [Suspect]
     Active Substance: OFLOXACIN
     Indication: Blepharokeratoconjunctivitis
     Dosage: EYE OINTMENT
     Route: 047
  10. OFLOXACIN [Suspect]
     Active Substance: OFLOXACIN
     Indication: Dermatitis contact
  11. FLUOROMETHOLONE [Suspect]
     Active Substance: FLUOROMETHOLONE
     Indication: Blepharokeratoconjunctivitis
     Route: 061
  12. FLUOROMETHOLONE [Suspect]
     Active Substance: FLUOROMETHOLONE
     Indication: Dermatitis contact
  13. DIQUAFOSOL TETRASODIUM [Suspect]
     Active Substance: DIQUAFOSOL TETRASODIUM
     Indication: Blepharokeratoconjunctivitis
     Dosage: 6 TIMES A DAY
     Route: 047
  14. DIQUAFOSOL TETRASODIUM [Suspect]
     Active Substance: DIQUAFOSOL TETRASODIUM
     Indication: Dermatitis contact
  15. GATIFLOXACIN [Suspect]
     Active Substance: GATIFLOXACIN
     Indication: Blepharokeratoconjunctivitis
     Route: 061
  16. GATIFLOXACIN [Suspect]
     Active Substance: GATIFLOXACIN
     Indication: Dermatitis contact
  17. BETAMETHASONE [Suspect]
     Active Substance: BETAMETHASONE\BETAMETHASONE DIPROPIONATE
     Indication: Blepharokeratoconjunctivitis
     Route: 061
  18. BETAMETHASONE [Suspect]
     Active Substance: BETAMETHASONE\BETAMETHASONE DIPROPIONATE
     Indication: Dermatitis contact

REACTIONS (1)
  - Off label use [Unknown]
